FAERS Safety Report 9728212 (Version 2)
Quarter: 2013Q4

REPORT INFORMATION
  Report Type: Spontaneous
  Country: BE (occurrence: BE)
  Receive Date: 20131204
  Receipt Date: 20131204
  Transmission Date: 20140711
  Serious: Yes (Death, Other)
  Sender: FDA-Public Use
  Company Number: BE-JNJFOC-20131112011

PATIENT
  Sex: Male

DRUGS (3)
  1. XARELTO [Suspect]
     Indication: PRODUCT USED FOR UNKNOWN INDICATION
     Route: 048
  2. EMCONCOR [Concomitant]
     Route: 065
  3. TOTALIP [Concomitant]
     Route: 065

REACTIONS (5)
  - Pulmonary haemorrhage [Fatal]
  - Traumatic shock [Unknown]
  - Haemothorax [Unknown]
  - Chest injury [Unknown]
  - Fall [Unknown]
